FAERS Safety Report 21904166 (Version 2)
Quarter: 2023Q2

REPORT INFORMATION
  Report Type: Spontaneous
  Country: US (occurrence: US)
  Receive Date: 20230124
  Receipt Date: 20230417
  Transmission Date: 20230721
  Serious: No
  Sender: FDA-Public Use
  Company Number: US-BIOGEN-2023BI01183159

PATIENT
  Sex: Female

DRUGS (4)
  1. TYSABRI [Suspect]
     Active Substance: NATALIZUMAB
     Indication: Multiple sclerosis
     Route: 050
     Dates: start: 20140113, end: 20171229
  2. TYSABRI [Suspect]
     Active Substance: NATALIZUMAB
     Route: 050
     Dates: start: 20190723, end: 20210601
  3. TYSABRI [Suspect]
     Active Substance: NATALIZUMAB
     Route: 050
  4. TYSABRI [Suspect]
     Active Substance: NATALIZUMAB

REACTIONS (1)
  - Memory impairment [Not Recovered/Not Resolved]
